FAERS Safety Report 14278702 (Version 1)
Quarter: 2017Q4

REPORT INFORMATION
  Report Type: Spontaneous
  Country: CA (occurrence: CA)
  Receive Date: 20171212
  Receipt Date: 20171212
  Transmission Date: 20180321
  Serious: Yes (Other)
  Sender: FDA-Public Use
  Company Number: CA-PURDUE-CAN-2017-0008191

PATIENT
  Age: 60 Year
  Sex: Female
  Weight: 64 kg

DRUGS (24)
  1. ARAVA [Concomitant]
     Active Substance: LEFLUNOMIDE
  2. PANTOPRAZOLE [Suspect]
     Active Substance: PANTOPRAZOLE
     Indication: PRODUCT USED FOR UNKNOWN INDICATION
     Dosage: UNK
     Route: 065
  3. AZOPT [Concomitant]
     Active Substance: BRINZOLAMIDE
  4. COUMADIN [Concomitant]
     Active Substance: WARFARIN SODIUM
  5. CYMBALTA [Concomitant]
     Active Substance: DULOXETINE HYDROCHLORIDE
  6. DOCUSATE [Concomitant]
     Active Substance: DOCUSATE
  7. XALATAN [Concomitant]
     Active Substance: LATANOPROST
  8. MORPHINE SULFATE. [Suspect]
     Active Substance: MORPHINE SULFATE
     Indication: PRODUCT USED FOR UNKNOWN INDICATION
     Dosage: UNK
     Route: 065
  9. RITUXAN [Suspect]
     Active Substance: RITUXIMAB
     Indication: RHEUMATOID ARTHRITIS
     Dosage: 1000 MG, UNK
     Route: 042
  10. ELAVIL [Concomitant]
     Active Substance: AMITRIPTYLINE HYDROCHLORIDE
  11. EPINEPHRINE. [Concomitant]
     Active Substance: EPINEPHRINE
  12. SENOKOT [Concomitant]
     Active Substance: SENNOSIDES
  13. VENTOLIN [Concomitant]
     Active Substance: ALBUTEROL SULFATE
  14. NEXIUM [Suspect]
     Active Substance: ESOMEPRAZOLE MAGNESIUM
     Indication: PRODUCT USED FOR UNKNOWN INDICATION
     Dosage: UNK
     Route: 065
  15. OXYNEO [Concomitant]
     Active Substance: OXYCODONE
  16. BETAXOLOL HYDROCHLORIDE. [Concomitant]
     Active Substance: BETAXOLOL HYDROCHLORIDE
  17. SYNTHROID [Concomitant]
     Active Substance: LEVOTHYROXINE SODIUM
  18. ACTEMRA [Suspect]
     Active Substance: TOCILIZUMAB
     Indication: RHEUMATOID ARTHRITIS
     Dosage: 512 MG, UNK
     Route: 042
  19. METHOTREXATE SODIUM. [Suspect]
     Active Substance: METHOTREXATE SODIUM
     Indication: RHEUMATOID ARTHRITIS
     Dosage: UNK
     Route: 065
  20. ACETAMINOPHEN. [Concomitant]
     Active Substance: ACETAMINOPHEN
     Dosage: 650 MG, UNK
  21. CYCLOBENZAPRINE. [Suspect]
     Active Substance: CYCLOBENZAPRINE
     Indication: PRODUCT USED FOR UNKNOWN INDICATION
     Dosage: UNK
     Route: 065
  22. M-ESLON [Suspect]
     Active Substance: MORPHINE SULFATE
     Indication: PRODUCT USED FOR UNKNOWN INDICATION
     Dosage: UNK
     Route: 065
  23. OMEPRAZOLE. [Suspect]
     Active Substance: OMEPRAZOLE
     Indication: PRODUCT USED FOR UNKNOWN INDICATION
     Dosage: UNK
     Route: 065
  24. DIPHENHYDRAMINE. [Concomitant]
     Active Substance: DIPHENHYDRAMINE
     Dosage: 50 MG, UNK
     Route: 042

REACTIONS (8)
  - Haemoglobin decreased [Not Recovered/Not Resolved]
  - Pain [Not Recovered/Not Resolved]
  - Muscular weakness [Not Recovered/Not Resolved]
  - Swelling [Not Recovered/Not Resolved]
  - Hyperaesthesia [Not Recovered/Not Resolved]
  - Nasopharyngitis [Not Recovered/Not Resolved]
  - Diarrhoea [Not Recovered/Not Resolved]
  - Fungal infection [Not Recovered/Not Resolved]
